FAERS Safety Report 9996555 (Version 2)
Quarter: 2014Q2

REPORT INFORMATION
  Report Type: Report from Study
  Country: US (occurrence: US)
  Receive Date: 20140311
  Receipt Date: 20140418
  Transmission Date: 20141212
  Serious: Yes (Hospitalization)
  Sender: FDA-Public Use
  Company Number: US-BRISTOL-MYERS SQUIBB COMPANY-20385308

PATIENT
  Age: 61 Year
  Sex: Male
  Weight: 117.91 kg

DRUGS (17)
  1. IPILIMUMAB [Suspect]
     Indication: PROSTATE CANCER METASTATIC
     Dosage: OVER 90MINS
     Route: 042
     Dates: start: 20140205
  2. ASPIRIN [Concomitant]
     Dosage: 162MG TABS
     Route: 048
  3. ATENOLOL [Concomitant]
     Route: 048
  4. BENICAR HCT [Concomitant]
     Dosage: 1DF: 4-25MG?OLMES:40MG
     Route: 048
  5. CALCIUM + VITAMIN D [Concomitant]
     Dosage: 1DF: 600-200MG?CALCIUM (ELEMENTAL} 5O0MG+VIT D 200UNITS 1 TAB BY MOUTH DAILY
     Route: 048
  6. CELEBREX [Concomitant]
     Route: 048
  7. CRESTOR [Concomitant]
     Route: 048
  8. EFFEXOR XR [Concomitant]
     Dosage: EXTENDED RELEASE
     Route: 048
  9. INSULIN ASPART [Concomitant]
     Dosage: BEFORE EACH MEAL AND BEDTIME
  10. PANTOPRAZOLE [Concomitant]
     Route: 042
  11. MAGNESIUM SULFATE [Concomitant]
     Route: 042
  12. NACL 0.9% [Concomitant]
     Route: 040
  13. METHYLPREDNISOLONE [Concomitant]
     Route: 042
  14. PNEUMOCOCCAL VACCINE [Concomitant]
     Route: 030
  15. ZOLPIDEM [Concomitant]
     Route: 048
  16. ACETAMINOPHEN [Concomitant]
     Dosage: 650MG FOR EVERY 6 HRS
     Route: 048
  17. POTASSIUM CHLORIDE [Concomitant]
     Route: 048

REACTIONS (5)
  - Diarrhoea [Recovered/Resolved]
  - Pyrexia [Recovered/Resolved]
  - Hypomagnesaemia [Recovered/Resolved]
  - Hyponatraemia [Recovered/Resolved]
  - Hypokalaemia [Recovered/Resolved]
